FAERS Safety Report 7563924-2 (Version None)
Quarter: 2011Q2

REPORT INFORMATION
  Report Type: 
  Country: None (occurrence: None)
  Receive Date: 20110622
  Receipt Date: 20110610
  Transmission Date: 20111010
  Serious: Yes (Hospitalization)
  Sender: FDA-Public Use
  Company Number: US-UCBSA-035155

PATIENT
  Sex: Male
  Weight: 139.25 kg

DRUGS (12)
  1. TESTOSTERONE [Concomitant]
     Indication: BLOOD TESTOSTERONE DECREASED
     Dosage: 200MG Q0W
     Dates: start: 20070501
  2. LASIX [Concomitant]
     Indication: CELLULITIS
     Dosage: AS NECESSARY
     Dates: start: 20100415
  3. ROTIGOTINE [Suspect]
     Dosage: IN STUDY SP953
     Route: 062
     Dates: start: 20091120
  4. IBUPROFEN [Concomitant]
     Indication: GOUTY ARTHRITIS
     Dates: start: 20000101
  5. STALEVO 200 [Concomitant]
     Indication: PARKINSON'S DISEASE
     Dosage: 1 TABLET
     Dates: start: 20100522
  6. SYMBICORT [Concomitant]
     Indication: CHRONIC SINUSITIS
     Dosage: 2 PUFFS
     Dates: start: 20100413
  7. ALLOPURINOL [Concomitant]
     Indication: GOUT
     Dates: start: 19900101
  8. TORSEMIDE [Concomitant]
     Indication: OEDEMA PERIPHERAL
     Dates: start: 20081024
  9. LASIX [Concomitant]
     Indication: OEDEMA PERIPHERAL
     Dosage: AS NECESSARY
     Dates: start: 20100415
  10. K-DUR [Concomitant]
     Indication: PROPHYLAXIS
     Dosage: AS NECESSARY
     Dates: start: 20100415
  11. ROTIGOTINE [Suspect]
     Indication: PARKINSON'S DISEASE
     Dosage: BEFORE ENROLLED IN STUDY SP953
     Route: 062
     Dates: start: 20091106
  12. PARCOPA 25/100 [Concomitant]
     Indication: PARKINSON'S DISEASE
     Dosage: 1 TABLET
     Dates: start: 20060718

REACTIONS (1)
  - LOSS OF CONSCIOUSNESS [None]
